FAERS Safety Report 24907305 (Version 2)
Quarter: 2025Q1

REPORT INFORMATION
  Report Type: Report from Study
  Country: CA (occurrence: CA)
  Receive Date: 20250130
  Receipt Date: 20250216
  Transmission Date: 20250409
  Serious: Yes (Other)
  Sender: ABBVIE
  Company Number: CA-ABBVIE-6099521

PATIENT
  Age: 52 Year
  Sex: Female

DRUGS (2)
  1. SKYRIZI [Suspect]
     Active Substance: RISANKIZUMAB-RZAA
     Indication: Crohn^s disease
     Route: 058
     Dates: start: 20241029
  2. AZATHIOPRINE [Concomitant]
     Active Substance: AZATHIOPRINE
     Indication: Product used for unknown indication
     Dosage: 1.5 PILLS
     Route: 048

REACTIONS (3)
  - Uterine leiomyoma [Not Recovered/Not Resolved]
  - Procedural pain [Unknown]
  - Sinus headache [Unknown]

NARRATIVE: CASE EVENT DATE: 20250113
